FAERS Safety Report 23182460 (Version 23)
Quarter: 2025Q4

REPORT INFORMATION
  Report Type: Report from Study
  Country: US (occurrence: US)
  Receive Date: 20231114
  Receipt Date: 20251110
  Transmission Date: 20260117
  Serious: Yes (Other)
  Sender: TAKEDA
  Company Number: US-TAKEDA-2023TUS022355

PATIENT
  Sex: Female
  Weight: 68 kg

DRUGS (19)
  1. HUMAN IMMUNOGLOBULIN G [Suspect]
     Active Substance: HUMAN IMMUNOGLOBULIN G
     Indication: Immune system disorder
     Dosage: 8 GRAM, 1/WEEK
  2. HUMAN IMMUNOGLOBULIN G [Suspect]
     Active Substance: HUMAN IMMUNOGLOBULIN G
     Indication: Hypergammaglobulinaemia
     Dosage: 8 GRAM
  3. HUMAN IMMUNOGLOBULIN G [Suspect]
     Active Substance: HUMAN IMMUNOGLOBULIN G
     Dosage: 8 GRAM, 1/WEEK
  4. MODERNA COVID-19 VACCINE [Suspect]
     Active Substance: ELASOMERAN
     Indication: Product used for unknown indication
     Dosage: UNK
  5. MODERNA COVID-19 VACCINE [Suspect]
     Active Substance: ELASOMERAN
     Dosage: UNK
  6. CLINDAMYCIN [Suspect]
     Active Substance: CLINDAMYCIN
     Indication: Product used for unknown indication
     Dosage: UNK
  7. TYMLOS [Suspect]
     Active Substance: ABALOPARATIDE
     Indication: Product used for unknown indication
     Dosage: UNK
  8. PEMGARDA [Suspect]
     Active Substance: PEMIVIBART
     Indication: Product used for unknown indication
     Dosage: UNK
  9. DIPHENHYDRAMINE [Concomitant]
     Active Substance: DIPHENHYDRAMINE
     Dosage: UNK
  10. EPINEPHRINE [Concomitant]
     Active Substance: EPINEPHRINE
     Dosage: UNK
  11. VITAMIN D3 [Concomitant]
     Active Substance: CHOLECALCIFEROL
     Dosage: UNK
  12. CYTOMEL [Concomitant]
     Active Substance: LIOTHYRONINE SODIUM
     Dosage: UNK
  13. PROVENTIL HFA [Concomitant]
     Active Substance: ALBUTEROL SULFATE
     Dosage: UNK
  14. ACETAMINOPHEN [Concomitant]
     Active Substance: ACETAMINOPHEN
     Dosage: UNK
  15. HYDROCORTISONE [Concomitant]
     Active Substance: HYDROCORTISONE
     Dosage: UNK
  16. SYNTHROID [Concomitant]
     Active Substance: LEVOTHYROXINE SODIUM
     Dosage: UNK
  17. PRASTERONE [Concomitant]
     Active Substance: PRASTERONE
     Dosage: UNK
  18. DIPHENHYDRAMINE HYDROCHLORIDE [Concomitant]
     Active Substance: DIPHENHYDRAMINE HYDROCHLORIDE
     Dosage: UNK
  19. PROTONIX [Concomitant]
     Active Substance: PANTOPRAZOLE SODIUM

REACTIONS (44)
  - Pneumatosis intestinalis [Unknown]
  - Colitis [Unknown]
  - Product distribution issue [Unknown]
  - Sensitive skin [Unknown]
  - Skin disorder [Recovered/Resolved]
  - Bed bug infestation [Recovering/Resolving]
  - Allergy to arthropod bite [Unknown]
  - Device leakage [Unknown]
  - Urinary tract infection [Unknown]
  - Weight decreased [Unknown]
  - Hyperaesthesia teeth [Unknown]
  - Oral pain [Unknown]
  - Dermatitis contact [Unknown]
  - Gastrointestinal disorder [Unknown]
  - Breast pain [Unknown]
  - Breast discharge [Unknown]
  - Illness [Unknown]
  - Drug hypersensitivity [Not Recovered/Not Resolved]
  - Scar [Unknown]
  - Infusion site scar [Unknown]
  - Product dose omission issue [Unknown]
  - Infusion site pruritus [Unknown]
  - Infusion site discolouration [Unknown]
  - Gastroenteritis viral [Unknown]
  - Abdominal discomfort [Unknown]
  - Palpitations [Unknown]
  - Malaise [Unknown]
  - Injection site reaction [Unknown]
  - Heart rate increased [Recovering/Resolving]
  - Infusion site bruising [Unknown]
  - Infusion site reaction [Unknown]
  - Injection site erythema [Unknown]
  - Infusion site erythema [Unknown]
  - Urticaria [Unknown]
  - Infusion site swelling [Unknown]
  - Tachycardia [Unknown]
  - Infusion site pain [Unknown]
  - Migraine [Recovering/Resolving]
  - Pruritus [Unknown]
  - Nausea [Recovering/Resolving]
  - Headache [Recovering/Resolving]
  - Inappropriate schedule of product administration [Unknown]
  - Pyrexia [Unknown]
  - Irritable bowel syndrome [Unknown]
